FAERS Safety Report 5104967-8 (Version None)
Quarter: 2006Q3

REPORT INFORMATION
  Report Type: 
  Country: None (occurrence: None)
  Receive Date: 20060914
  Receipt Date: 20060906
  Transmission Date: 20061208
  Serious: Yes (Other)
  Sender: FDA-Public Use
  Company Number: US-JNJFOC-20060901780

PATIENT
  Sex: Male

DRUGS (2)
  1. RAZADYNE ER [Suspect]
     Indication: DEMENTIA ALZHEIMER'S TYPE
     Route: 048
  2. BLOOD PRESSURE MEDICATION (NOS) [Concomitant]

REACTIONS (2)
  - BLINDNESS TRANSIENT [None]
  - HALLUCINATION [None]
